FAERS Safety Report 6712806-4 (Version None)
Quarter: 2010Q2

REPORT INFORMATION
  Report Type: 
  Country: None (occurrence: None)
  Receive Date: 20100506
  Receipt Date: 20090916
  Transmission Date: 20101027
  Serious: No
  Sender: FDA-Public Use
  Company Number: A0807678A

PATIENT
  Age: 18 Year
  Sex: Male

DRUGS (4)
  1. AUGMENTIN '125' [Suspect]
     Indication: MYCOBACTERIAL INFECTION
     Dosage: 875MG TWICE PER DAY
     Route: 048
     Dates: start: 20090801, end: 20090801
  2. TIMENTIN [Suspect]
     Indication: MYCOBACTERIAL INFECTION
     Route: 042
  3. MEROPENEM [Concomitant]
  4. AZITHROMYCIN [Concomitant]

REACTIONS (1)
  - RASH [None]
